FAERS Safety Report 14308005 (Version 1)
Quarter: 2017Q4

REPORT INFORMATION
  Report Type: Spontaneous
  Country: BR (occurrence: BR)
  Receive Date: 20171220
  Receipt Date: 20171220
  Transmission Date: 20180321
  Serious: Yes (Other)
  Sender: FDA-Public Use
  Company Number: BR-TORRENT-00004221

PATIENT
  Age: 60 Year
  Sex: Female

DRUGS (1)
  1. VENLIFT OD [Suspect]
     Active Substance: VENLAFAXINE HYDROCHLORIDE
     Indication: PRODUCT USED FOR UNKNOWN INDICATION
     Route: 048

REACTIONS (6)
  - Depression [Unknown]
  - Vomiting [Unknown]
  - Feeling abnormal [Unknown]
  - Product quality issue [Unknown]
  - Dysgeusia [Unknown]
  - Product contamination physical [Unknown]

NARRATIVE: CASE EVENT DATE: 20170505
